FAERS Safety Report 4680301-2 (Version None)
Quarter: 2005Q2

REPORT INFORMATION
  Report Type: 
  Country: None (occurrence: None)
  Receive Date: 20050601
  Receipt Date: 20050525
  Transmission Date: 20051028
  Serious: Yes (Other)
  Sender: FDA-Public Use
  Company Number: 200510066BSV

PATIENT
  Age: 77 Year
  Sex: Female

DRUGS (11)
  1. CIPROFLOXACIN HCL [Suspect]
     Indication: DIVERTICULITIS
     Dosage: 1 G, TOTAL DAILY, ORAL
     Route: 048
     Dates: start: 20040714, end: 20040719
  2. DALACINE (CLINDAMYCIN HYDROCHLORIDE) [Suspect]
     Indication: DIVERTICULITIS
     Dosage: 900 MG, TOTAL DAILY, ORAL
     Route: 048
     Dates: start: 20040714, end: 20040728
  3. TRIATEC [Concomitant]
  4. FOLACIN [Concomitant]
  5. ALVEDON [Concomitant]
  6. GLUCOPHAGE [Concomitant]
  7. BEHEPAN [Concomitant]
  8. LAXOBERAL [Concomitant]
  9. LAKTULOSE [Concomitant]
  10. TRADOLAN [Concomitant]
  11. ZOPICLONE [Concomitant]

REACTIONS (4)
  - DRY MOUTH [None]
  - SWOLLEN TONGUE [None]
  - TOOTH DISORDER [None]
  - TREMOR [None]
